FAERS Safety Report 9798666 (Version 1)
Quarter: 2014Q1

REPORT INFORMATION
  Report Type: Spontaneous
  Country: US (occurrence: US)
  Receive Date: 20140106
  Receipt Date: 20140106
  Transmission Date: 20141002
  Serious: No
  Sender: FDA-Public Use
  Company Number: US-GILEAD-2010-0029747

PATIENT
  Sex: Female
  Weight: 51.26 kg

DRUGS (20)
  1. LETAIRIS [Suspect]
     Indication: PULMONARY ARTERIAL HYPERTENSION
     Route: 048
     Dates: start: 20100305
  2. FUROSEMIDE [Concomitant]
  3. REVATIO [Concomitant]
  4. NEURONTIN [Concomitant]
  5. SODIUM CHLORIDE [Concomitant]
  6. LECITHIN GRANULES [Concomitant]
  7. OMEPRAZOLE [Concomitant]
  8. LIDOCAINE [Concomitant]
  9. IMODIUM [Concomitant]
  10. PROGRAF [Concomitant]
  11. WARFARIN [Concomitant]
  12. MULTIVITAMINS [Concomitant]
  13. AMITRIPTYLINE [Concomitant]
  14. CLONIDINE [Concomitant]
  15. GABAPENTIN [Concomitant]
  16. PCCA POLOXAMER [Concomitant]
  17. REMODULIN [Concomitant]
  18. POTASSIUM CHLORIDE [Concomitant]
  19. KETAMINE [Concomitant]
  20. CALCIUM 500 + D [Concomitant]

REACTIONS (1)
  - Menorrhagia [Unknown]
